FAERS Safety Report 7378177-8 (Version None)
Quarter: 2011Q1

REPORT INFORMATION
  Report Type: 
  Country: None (occurrence: None)
  Receive Date: 20110328
  Receipt Date: 20110316
  Transmission Date: 20110831
  Serious: Yes (Hospitalization)
  Sender: FDA-Public Use
  Company Number: A0753274A

PATIENT
  Age: 35 Year
  Sex: Female
  Weight: 95.5 kg

DRUGS (10)
  1. AVANDIA [Suspect]
     Route: 048
     Dates: end: 20080201
  2. ZYRTEC [Concomitant]
     Indication: ASTHMA
     Dosage: 10MG PER DAY
  3. METOPROLOL SUCCINATE [Concomitant]
     Dosage: 25MG PER DAY
  4. NEURONTIN [Concomitant]
     Indication: ANXIETY
     Dosage: 300MG THREE TIMES PER DAY
  5. XANAX [Concomitant]
     Indication: SLEEP DISORDER
     Dosage: .5MG TWICE PER DAY
  6. FLUTICASONE PROPIONATE [Concomitant]
     Indication: ASTHMA
     Route: 045
  7. ZESTRIL [Concomitant]
     Indication: DEPRESSION
     Dosage: 2.5MG PER DAY
  8. NITROGLYCERIN [Concomitant]
  9. KLOR-CON [Concomitant]
     Indication: GOUT
  10. PREVACID [Concomitant]
     Indication: GASTRIC DISORDER
     Dosage: 30MG PER DAY

REACTIONS (2)
  - CARDIAC FAILURE CONGESTIVE [None]
  - MYOCARDIAL INFARCTION [None]
